FAERS Safety Report 4976593-2 (Version None)
Quarter: 2006Q2

REPORT INFORMATION
  Report Type: 
  Country: None (occurrence: None)
  Receive Date: 20060419
  Receipt Date: 20051025
  Transmission Date: 20061013
  Serious: Yes (Hospitalization, Disabling)
  Sender: FDA-Public Use
  Company Number: US-MERCK-0510USA09276

PATIENT
  Age: 62 Year
  Sex: Female
  Weight: 59 kg

DRUGS (3)
  1. VIOXX [Suspect]
     Indication: PAIN
     Route: 048
     Dates: start: 20030601, end: 20040901
  2. VIOXX [Suspect]
     Indication: HEADACHE
     Route: 048
     Dates: start: 20030601, end: 20040901
  3. TYLENOL (CAPLET) [Concomitant]
     Route: 065

REACTIONS (12)
  - ARTERIOSPASM CORONARY [None]
  - CEREBROVASCULAR ACCIDENT [None]
  - CHEST PAIN [None]
  - CORONARY ARTERY DISEASE [None]
  - DEPRESSION [None]
  - GASTROOESOPHAGEAL REFLUX DISEASE [None]
  - LOSS OF CONSCIOUSNESS [None]
  - MYOCARDIAL INFARCTION [None]
  - MYOCARDIAL ISCHAEMIA [None]
  - OEDEMA [None]
  - PULMONARY EMBOLISM [None]
  - SYNCOPE [None]
